FAERS Safety Report 5320414-5 (Version None)
Quarter: 2007Q2

REPORT INFORMATION
  Report Type: 
  Country: None (occurrence: None)
  Receive Date: 20070509
  Receipt Date: 20070509
  Transmission Date: 20071010
  Serious: Yes (Other)
  Sender: FDA-Public Use
  Company Number: A0650399A

PATIENT
  Age: 24 Year
  Sex: Male

DRUGS (3)
  1. NICODERM CQ [Suspect]
     Indication: SMOKING CESSATION THERAPY
     Route: 062
     Dates: start: 20070101, end: 20070505
  2. PROZAC [Concomitant]
  3. RISPERDAL [Concomitant]

REACTIONS (1)
  - SUICIDAL IDEATION [None]
